FAERS Safety Report 11064119 (Version 1)
Quarter: 2015Q2

REPORT INFORMATION
  Report Type: Spontaneous
  Country: TR (occurrence: TR)
  Receive Date: 20150424
  Receipt Date: 20150424
  Transmission Date: 20150821
  Serious: Yes (Hospitalization)
  Sender: FDA-Public Use
  Company Number: TR-CIPLA LTD.-2015TR03251

PATIENT

DRUGS (11)
  1. HALOPERIDOL. [Suspect]
     Active Substance: HALOPERIDOL
     Indication: INTENTIONAL SELF-INJURY
     Dosage: 5 MG, QD
  2. VALPROIC ACID. [Suspect]
     Active Substance: VALPROIC ACID
     Indication: INTENTIONAL SELF-INJURY
     Dosage: 120 MG, QD, DOSE WAS INCREASED TO 200MG/DAY IN THE SECOND DAY
  3. VALPROIC ACID. [Suspect]
     Active Substance: VALPROIC ACID
     Dosage: 200 MG, QD, DOSE WAS INCREASED TO 200MG/DAY IN THE SECOND DAY
  4. TOPIRAMATE. [Suspect]
     Active Substance: TOPIRAMATE
     Dosage: 25 MG, QD, WAS ADDED ON 22ND OF THE TREATMENT, INCREASED 7 DAYS LATER
  5. CHLORPROMAZINE [Suspect]
     Active Substance: CHLORPROMAZINE
     Dosage: 150 MG QD,  INCREASED ON THE 19TH DAY OF THE TREATMENT
  6. RISPERIDONE. [Suspect]
     Active Substance: RISPERIDONE
     Indication: INTENTIONAL SELF-INJURY
     Dosage: 3 MG, QD
  7. TOPIRAMATE. [Suspect]
     Active Substance: TOPIRAMATE
     Indication: INTENTIONAL SELF-INJURY
     Dosage: 15 MG, QD, WAS ADDED ON 22ND OF THE TREATMENT, INCREASED 7 DAYS LATER
  8. ARIPIPRAZOLE. [Suspect]
     Active Substance: ARIPIPRAZOLE
     Indication: INTENTIONAL SELF-INJURY
     Dosage: 2 MG, QD, BY INCREASING 2 MG IN EVERY TWO DAYS
  9. ARIPIPRAZOLE. [Suspect]
     Active Substance: ARIPIPRAZOLE
     Dosage: 6 MD, QD, BY INCREASING 2 MG IN EVERY TWO DAYS
  10. TOPIRAMATE. [Suspect]
     Active Substance: TOPIRAMATE
     Dosage: 50 MG, QD
  11. CHLORPROMAZINE [Suspect]
     Active Substance: CHLORPROMAZINE
     Indication: INTENTIONAL SELF-INJURY
     Dosage: 100 MG, INCREASED ON THE 19TH DAY OF THE TREATMENT

REACTIONS (1)
  - Drug ineffective [Recovered/Resolved]
